FAERS Safety Report 9749467 (Version 2)
Quarter: 2014Q1

REPORT INFORMATION
  Report Type: Spontaneous
  Country: GB (occurrence: GB)
  Receive Date: 20131212
  Receipt Date: 20140225
  Transmission Date: 20141002
  Serious: Yes (Other)
  Sender: FDA-Public Use
  Company Number: PHHY2013GB143716

PATIENT
  Age: 51 Year
  Sex: Female

DRUGS (1)
  1. DICLOFENAC [Suspect]
     Indication: BACK PAIN
     Dosage: 75 MG, BID

REACTIONS (8)
  - Gastrointestinal disorder [Recovered/Resolved]
  - Gastric ulcer [Recovered/Resolved]
  - Ileal ulcer [Recovered/Resolved]
  - Vomiting [Recovering/Resolving]
  - Weight decreased [Recovering/Resolving]
  - Early satiety [Recovering/Resolving]
  - Constipation [Recovering/Resolving]
  - Large intestinal ulcer [Recovered/Resolved]
